FAERS Safety Report 15800742 (Version 1)
Quarter: 2019Q1

REPORT INFORMATION
  Report Type: Report from Study
  Country: RO (occurrence: RO)
  Receive Date: 20190109
  Receipt Date: 20190109
  Transmission Date: 20190417
  Serious: Yes (Other)
  Sender: FDA-Public Use
  Company Number: RO-ROCHE-2154192

PATIENT
  Age: 59 Year
  Sex: Male

DRUGS (12)
  1. RIBAVIRIN. [Suspect]
     Active Substance: RIBAVIRIN
     Indication: HEPATITIS C
     Dosage: MOST RECENT DOSE ON 10/SEP/2018
     Route: 048
     Dates: start: 20180619
  2. NORMIX [Concomitant]
     Active Substance: RIFAXIMIN
     Route: 065
  3. LEDIPASVIR/SOFOSBUVIR [Suspect]
     Active Substance: LEDIPASVIR\SOFOSBUVIR
     Indication: HEPATIC CIRRHOSIS
  4. THIOSSEN [Concomitant]
     Active Substance: THIOCTIC ACID
     Indication: DIABETES MELLITUS
  5. LEDIPASVIR/SOFOSBUVIR [Suspect]
     Active Substance: LEDIPASVIR\SOFOSBUVIR
     Indication: HEPATITIS C
     Dosage: MOST RECENT DOSE ON 10/SEP/2018
     Route: 048
     Dates: start: 20180619
  6. DIUREX (ROMANIA) [Concomitant]
     Route: 065
  7. URSOFALK [Concomitant]
     Active Substance: URSODIOL
     Route: 065
  8. SARGENOR [Concomitant]
     Active Substance: ARGININE ASPARTATE
     Route: 065
  9. MILGAMMA (BENFOTIAMINE) [Concomitant]
     Route: 065
  10. RIBAVIRIN. [Suspect]
     Active Substance: RIBAVIRIN
     Indication: HEPATIC CIRRHOSIS
  11. HEPA-MERZ (ORNITHINE ASPARTATE) [Concomitant]
     Active Substance: ORNITHINE ASPARTATE
     Route: 065
  12. DULCOLAX (BISACODYL) [Concomitant]
     Active Substance: BISACODYL
     Route: 065

REACTIONS (5)
  - Vision blurred [Not Recovered/Not Resolved]
  - Somnolence [Not Recovered/Not Resolved]
  - Hepatic encephalopathy [Recovered/Resolved]
  - Hypersomnia [Not Recovered/Not Resolved]
  - Paresis [Not Recovered/Not Resolved]

NARRATIVE: CASE EVENT DATE: 20180625
